FAERS Safety Report 9262376 (Version 1)
Quarter: 2013Q2

REPORT INFORMATION
  Report Type: Spontaneous
  Country: US (occurrence: None)
  Receive Date: 20130425
  Receipt Date: 20130425
  Transmission Date: 20140414
  Serious: Yes (Life-Threatening, Hospitalization)
  Sender: FDA-Public Use
  Company Number: None

PATIENT
  Age: 41 Year
  Sex: Male
  Weight: 95.7 kg

DRUGS (15)
  1. DIVALPROEX SODIUM [Suspect]
     Indication: CONVULSION
     Dosage: 500 AM, 1000HS
     Route: 048
     Dates: start: 20120628, end: 20130128
  2. ACETAMINOPHEN [Concomitant]
  3. BENZTROPINE [Concomitant]
  4. CALCIUM/VIT D [Concomitant]
  5. DIPHENHYDRAMINE [Concomitant]
  6. DOCUSATE SODIUM [Concomitant]
  7. LEVETRIACETAM [Concomitant]
  8. PREGABALIN [Concomitant]
  9. VITAMIN D3 [Concomitant]
  10. DULOXETINE [Concomitant]
  11. IBUPROFEN [Concomitant]
  12. LEVOTHYROXIN [Concomitant]
  13. RISPERIDON [Concomitant]
  14. TRAZODONE [Concomitant]
  15. ZOLPIDEM [Concomitant]

REACTIONS (8)
  - Ammonia increased [None]
  - Aphagia [None]
  - Fluid intake reduced [None]
  - Abnormal behaviour [None]
  - Delirium [None]
  - Lethargy [None]
  - Unresponsive to stimuli [None]
  - Dysstasia [None]
